FAERS Safety Report 8321689-0 (Version None)
Quarter: 2012Q2

REPORT INFORMATION
  Report Type: 
  Country: None (occurrence: None)
  Receive Date: 20120430
  Receipt Date: 20120420
  Transmission Date: 20120825
  Serious: Yes (Death, Congenital Anomaly)
  Sender: FDA-Public Use
  Company Number: DE-UCBSA-055856

PATIENT
  Sex: Female

DRUGS (2)
  1. KEPPRA [Suspect]
     Indication: EPILEPSY
     Route: 064
     Dates: start: 20091201, end: 20100101
  2. FOLIO FORTE [Concomitant]
     Indication: NEURAL TUBE DEFECT
     Dosage: DAILY DOSE:0.8 MG
     Route: 064
     Dates: start: 20091201, end: 20100101

REACTIONS (6)
  - FOETAL EXPOSURE DURING PREGNANCY [None]
  - SPINA BIFIDA [None]
  - CONGENITAL FOOT MALFORMATION [None]
  - HEART DISEASE CONGENITAL [None]
  - CLEFT LIP AND PALATE [None]
  - SPINE MALFORMATION [None]
